FAERS Safety Report 21455350 (Version 2)
Quarter: 2024Q1

REPORT INFORMATION
  Report Type: Spontaneous
  Country: US (occurrence: US)
  Receive Date: 20221014
  Receipt Date: 20240125
  Transmission Date: 20240410
  Serious: Yes (Other)
  Sender: FDA-Public Use
  Company Number: US-BRISTOL-MYERS SQUIBB COMPANY-2022-119836

PATIENT
  Age: 30 Year
  Sex: Male
  Weight: 70.3 kg

DRUGS (2)
  1. ELIQUIS [Suspect]
     Active Substance: APIXABAN
     Indication: Embolism venous
     Route: 048
     Dates: start: 2022, end: 2022
  2. ELIQUIS [Suspect]
     Active Substance: APIXABAN
     Route: 048
     Dates: start: 2022, end: 2022

REACTIONS (4)
  - Fatigue [Unknown]
  - Haematochezia [Unknown]
  - Scab [Unknown]
  - Off label use [Unknown]

NARRATIVE: CASE EVENT DATE: 20220101
